FAERS Safety Report 8233193-9 (Version None)
Quarter: 2012Q1

REPORT INFORMATION
  Report Type: 
  Country: None (occurrence: None)
  Receive Date: 20120326
  Receipt Date: 20120319
  Transmission Date: 20120608
  Serious: No
  Sender: FDA-Public Use
  Company Number: US-PFIZER INC-2012071318

PATIENT
  Sex: Female
  Weight: 67.12 kg

DRUGS (2)
  1. ADVIL COLD AND SINUS [Suspect]
     Indication: HEADACHE
  2. ADVIL COLD AND SINUS [Suspect]
     Indication: SINUS DISORDER
     Dosage: UNK

REACTIONS (5)
  - PAIN [None]
  - DRUG INEFFECTIVE [None]
  - HEADACHE [None]
  - FEELING ABNORMAL [None]
  - SINUS DISORDER [None]
